FAERS Safety Report 11239114 (Version 2)
Quarter: 2015Q3

REPORT INFORMATION
  Report Type: Spontaneous
  Country: GB (occurrence: None)
  Receive Date: 20150701
  Receipt Date: 20150729
  Transmission Date: 20151125
  Serious: Yes (Other)
  Sender: FDA-Public Use
  Company Number: PR 11626

PATIENT
  Age: 62 Year
  Sex: Female

DRUGS (3)
  1. COSOPT [Suspect]
     Active Substance: DORZOLAMIDE HYDROCHLORIDE\TIMOLOL MALEATE
     Indication: GLAUCOMA
     Dates: start: 2008
  2. CITALOPRAM [Concomitant]
     Active Substance: CITALOPRAM HYDROBROMIDE
  3. GANFORT (BIMATOPROST, TIMOLOL MALEATE) [Concomitant]

REACTIONS (11)
  - Vision blurred [None]
  - Dry eye [None]
  - Eye complication associated with device [None]
  - Visual impairment [None]
  - Medical device site injury [None]
  - Device breakage [None]
  - Accommodation disorder [None]
  - Corneal infection [None]
  - Self-medication [None]
  - Impaired healing [None]
  - Corneal abrasion [None]

NARRATIVE: CASE EVENT DATE: 201408
